FAERS Safety Report 5258721-7 (Version None)
Quarter: 2007Q1

REPORT INFORMATION
  Report Type: 
  Country: None (occurrence: None)
  Receive Date: 20070305
  Receipt Date: 20070226
  Transmission Date: 20070707
  Serious: Yes (Death)
  Sender: FDA-Public Use
  Company Number: 056-C5013-06110936

PATIENT
  Age: 48 Year
  Sex: Female
  Weight: 60 kg

DRUGS (3)
  1. CC-5013 (LENALIDOMIDE) (CAPSULES) [Suspect]
     Indication: MULTIPLE MYELOMA
     Dosage: 25  MG, 1 IN 1 D, ORAL
     Route: 048
     Dates: start: 20060910, end: 20061014
  2. DEXAMETHASONE TAB [Suspect]
     Indication: MULTIPLE MYELOMA
     Dosage: 40 MG, 4 DAYS PER WEEK, ORAL
     Route: 048
     Dates: start: 20060910, end: 20061014
  3. ROCEPHIN [Concomitant]

REACTIONS (4)
  - APLASIA [None]
  - MALIGNANT NEOPLASM PROGRESSION [None]
  - MULTIPLE MYELOMA [None]
  - SEPTIC SHOCK [None]
